FAERS Safety Report 25054945 (Version 1)
Quarter: 2025Q1

REPORT INFORMATION
  Report Type: Spontaneous
  Country: US (occurrence: US)
  Receive Date: 20250308
  Receipt Date: 20250308
  Transmission Date: 20250409
  Serious: Yes (Death, Hospitalization, Other)
  Sender: NOVITIUM PHARMA
  Company Number: US-NOVITIUMPHARMA-2025USNVP00561

PATIENT
  Age: 64 Year
  Sex: Male

DRUGS (10)
  1. PREDNISONE [Suspect]
     Active Substance: PREDNISONE
     Indication: Grey zone lymphoma
  2. ETOPOSIDE [Concomitant]
     Active Substance: ETOPOSIDE
     Indication: Grey zone lymphoma
  3. VINCRISTINE [Concomitant]
     Active Substance: VINCRISTINE
     Indication: Grey zone lymphoma
  4. CYCLOPHOSPHAMIDE [Concomitant]
     Active Substance: CYCLOPHOSPHAMIDE
     Indication: Grey zone lymphoma
  5. DOXORUBICIN [Concomitant]
     Active Substance: DOXORUBICIN
     Indication: Grey zone lymphoma
  6. RITUXIMAB [Concomitant]
     Active Substance: RITUXIMAB
     Indication: Grey zone lymphoma
  7. PEMBROLIZUMAB [Concomitant]
     Active Substance: PEMBROLIZUMAB
     Indication: Grey zone lymphoma
     Route: 042
  8. FLUDARABINE [Concomitant]
     Active Substance: FLUDARABINE PHOSPHATE
     Indication: Grey zone lymphoma
  9. BRENTUXIMAB VEDOTIN [Concomitant]
     Active Substance: BRENTUXIMAB VEDOTIN
     Indication: Grey zone lymphoma
  10. AXICABTAGENE CILOLEUCEL [Concomitant]
     Active Substance: AXICABTAGENE CILOLEUCEL
     Indication: Grey zone lymphoma

REACTIONS (3)
  - Non-small cell lung cancer [Fatal]
  - Peripheral T-cell lymphoma unspecified [Unknown]
  - Drug ineffective [Unknown]
